FAERS Safety Report 8570980-1 (Version None)
Quarter: 2012Q3

REPORT INFORMATION
  Report Type: 
  Country: None (occurrence: None)
  Receive Date: 20120806
  Receipt Date: 20120726
  Transmission Date: 20120928
  Serious: Yes (Hospitalization)
  Sender: FDA-Public Use
  Company Number: US-BIOGENIDEC-2012BI027933

PATIENT
  Age: 49 Year
  Sex: Female

DRUGS (2)
  1. AVONEX [Suspect]
     Indication: MULTIPLE SCLEROSIS
     Route: 030
     Dates: start: 20090402, end: 20091231
  2. AVONEX [Suspect]
     Route: 030
     Dates: start: 20100327

REACTIONS (4)
  - NAUSEA [None]
  - MIGRAINE [None]
  - TOOTH EXTRACTION [None]
  - MULTIPLE SCLEROSIS RELAPSE [None]
